FAERS Safety Report 10274331 (Version 1)
Quarter: 2014Q3

REPORT INFORMATION
  Report Type: Spontaneous
  Country: US (occurrence: US)
  Receive Date: 20140702
  Receipt Date: 20140702
  Transmission Date: 20150326
  Serious: Yes (Other)
  Sender: FDA-Public Use
  Company Number: US-ABBVIE-14P-163-1253725-00

PATIENT
  Sex: Male

DRUGS (2)
  1. DEPO-TESTOSTERONE [Suspect]
     Active Substance: TESTOSTERONE CYPIONATE
     Indication: BLOOD TESTOSTERONE DECREASED
  2. ANDROGEL [Suspect]
     Active Substance: TESTOSTERONE
     Indication: BLOOD TESTOSTERONE DECREASED

REACTIONS (11)
  - Cerebrovascular accident [Unknown]
  - Multiple injuries [Unknown]
  - Loss of employment [Unknown]
  - Emotional distress [Unknown]
  - Thrombosis [Unknown]
  - Anhedonia [Unknown]
  - Myocardial infarction [Unknown]
  - Anxiety [Unknown]
  - Deformity [Unknown]
  - Social problem [Unknown]
  - Pain [Unknown]
